FAERS Safety Report 6236151-9 (Version None)
Quarter: 2009Q2

REPORT INFORMATION
  Report Type: 
  Country: None (occurrence: None)
  Receive Date: 20090616
  Receipt Date: 20090608
  Transmission Date: 20091009
  Serious: Yes (Other)
  Sender: FDA-Public Use
  Company Number: CHPA2009US13211

PATIENT
  Age: 21 Year
  Sex: Female
  Weight: 72.6 kg

DRUGS (1)
  1. EXCEDRIN EXTRA STRENGTH (NCH) CAFFEINE CITRATE, ACETYLSALICYLIC ACID, [Suspect]
     Indication: HEADACHE
     Dosage: 10 DO, QD, ORAL
     Route: 048
     Dates: start: 20090608, end: 20090608

REACTIONS (4)
  - HAEMATEMESIS [None]
  - NERVOUSNESS [None]
  - OVERDOSE [None]
  - VOMITING [None]
